FAERS Safety Report 5870248-8 (Version None)
Quarter: 2008Q3

REPORT INFORMATION
  Report Type: 
  Country: None (occurrence: None)
  Receive Date: 20080904
  Receipt Date: 20070726
  Transmission Date: 20090109
  Serious: No
  Sender: FDA-Public Use
  Company Number: US-BRISTOL-MYERS SQUIBB COMPANY-13858568

PATIENT
  Age: 68 Year
  Sex: Female

DRUGS (7)
  1. DEFINITY [Suspect]
     Indication: ECHOCARDIOGRAM
     Dosage: THEARPY DURATION 5-7MINUTES
     Route: 042
     Dates: start: 20070726, end: 20070726
  2. VYTORIN [Concomitant]
  3. COUMADIN [Concomitant]
  4. COREG [Concomitant]
  5. RAMIPRIL [Concomitant]
  6. LASIX [Concomitant]
  7. PRILOSEC [Concomitant]

REACTIONS (1)
  - BACK PAIN [None]
